FAERS Safety Report 20569140 (Version 1)
Quarter: 2022Q1

REPORT INFORMATION
  Report Type: Spontaneous
  Country: CA (occurrence: CA)
  Receive Date: 20220308
  Receipt Date: 20220308
  Transmission Date: 20220423
  Serious: Yes (Hospitalization)
  Sender: FDA-Public Use
  Company Number: CA-JNJFOC-20220305109

PATIENT
  Age: 66 Year
  Sex: Male
  Weight: 103 kg

DRUGS (1)
  1. REMICADE [Suspect]
     Active Substance: INFLIXIMAB
     Indication: Colitis ulcerative
     Route: 042

REACTIONS (8)
  - Weight increased [Recovered/Resolved]
  - Bone pain [Recovered/Resolved]
  - Gastrointestinal pain [Recovered/Resolved]
  - Bacterial infection [Recovered/Resolved]
  - Condition aggravated [Recovered/Resolved]
  - Product dose omission issue [Recovered/Resolved]
  - Inappropriate schedule of product administration [Recovered/Resolved]
  - Off label use [Recovered/Resolved]
